FAERS Safety Report 10866306 (Version 1)
Quarter: 2015Q1

REPORT INFORMATION
  Report Type: Spontaneous
  Country: TR (occurrence: TR)
  Receive Date: 20150225
  Receipt Date: 20150225
  Transmission Date: 20150721
  Serious: Yes (Other)
  Sender: FDA-Public Use
  Company Number: TR-CIPLA LTD.-2015TR01309

PATIENT

DRUGS (3)
  1. GEMCITABINE [Suspect]
     Active Substance: GEMCITABINE\GEMCITABINE HYDROCHLORIDE
     Indication: NON-SMALL CELL LUNG CANCER STAGE IIIB
     Dosage: 1200 MG/M2 FOR 1-8 DAYS
  2. CARBOPLATIN. [Suspect]
     Active Substance: CARBOPLATIN
     Indication: NON-SMALL CELL LUNG CANCER STAGE IIIB
     Dosage: AUC 5.5 1 DAY PER 30 DAYS IN 3 CYCLES
  3. GEMCITABINE [Suspect]
     Active Substance: GEMCITABINE\GEMCITABINE HYDROCHLORIDE
     Dosage: 800 MG/M2

REACTIONS (6)
  - Myositis [Unknown]
  - Diabetes mellitus [Unknown]
  - Pneumonia [Unknown]
  - Drug intolerance [Unknown]
  - Fatigue [Unknown]
  - Pain [Unknown]
